FAERS Safety Report 6858146-4 (Version None)
Quarter: 2010Q3

REPORT INFORMATION
  Report Type: 
  Country: None (occurrence: None)
  Receive Date: 20100719
  Receipt Date: 20080202
  Transmission Date: 20110219
  Serious: No
  Sender: FDA-Public Use
  Company Number: US-PFIZER INC-2008012048

PATIENT
  Sex: Female

DRUGS (1)
  1. CHANTIX [Suspect]
     Indication: SMOKING CESSATION THERAPY
     Dates: start: 20080121

REACTIONS (5)
  - INCORRECT DOSE ADMINISTERED [None]
  - MENSTRUAL DISORDER [None]
  - PRURITUS [None]
  - RASH [None]
  - RASH MACULAR [None]
